FAERS Safety Report 8341534-7 (Version None)
Quarter: 2012Q2

REPORT INFORMATION
  Report Type: 
  Country: None (occurrence: None)
  Receive Date: 20120507
  Receipt Date: 20120427
  Transmission Date: 20120825
  Serious: Yes (Hospitalization)
  Sender: FDA-Public Use
  Company Number: US-ASTRAZENECA-2012SE18983

PATIENT
  Age: 50 Year
  Sex: Female
  Weight: 83.9 kg

DRUGS (5)
  1. DIAZEPAM [Concomitant]
     Indication: RESTLESS LEGS SYNDROME
  2. RESCUE INHALER [Concomitant]
  3. SYMBICORT [Suspect]
     Indication: ASTHMA
     Dosage: 160/4.5MCG, 2 PUFFS TWO TIMES A DAY
     Route: 055
     Dates: start: 20100101
  4. SUPPOSITORY [Concomitant]
  5. SINGULAIR [Concomitant]

REACTIONS (4)
  - INTENTIONAL DRUG MISUSE [None]
  - SMALL INTESTINAL OBSTRUCTION [None]
  - DYSPNOEA [None]
  - BRONCHOSPASM [None]
